FAERS Safety Report 6017008-5 (Version None)
Quarter: 2008Q4

REPORT INFORMATION
  Report Type: 
  Country: None (occurrence: None)
  Receive Date: 20081223
  Receipt Date: 20081210
  Transmission Date: 20090506
  Serious: Yes (Other)
  Sender: FDA-Public Use
  Company Number: US-ROCHE-602458

PATIENT
  Sex: Male
  Weight: 79.4 kg

DRUGS (1)
  1. CAPECITABINE [Suspect]
     Indication: HEPATIC NEOPLASM MALIGNANT
     Route: 048
     Dates: start: 20080904, end: 20081201

REACTIONS (2)
  - DRUG INEFFECTIVE [None]
  - METASTATIC NEOPLASM [None]
